FAERS Safety Report 10190614 (Version 2)
Quarter: 2015Q1

REPORT INFORMATION
  Report Type: Spontaneous
  Country: US (occurrence: US)
  Receive Date: 20140523
  Receipt Date: 20150211
  Transmission Date: 20150720
  Serious: Yes (Other)
  Sender: FDA-Public Use
  Company Number: US-AMGEN-USASP2014037371

PATIENT
  Sex: Male

DRUGS (3)
  1. VECTIBIX [Suspect]
     Active Substance: PANITUMUMAB
     Indication: COLORECTAL CANCER METASTATIC
     Dosage: UNK
     Route: 065
  2. 5 FLUOROURACIL                     /00098801/ [Concomitant]
     Active Substance: FLUOROURACIL
     Indication: COLORECTAL CANCER METASTATIC
     Dosage: UNK
  3. IRINOTECAN [Suspect]
     Active Substance: IRINOTECAN
     Indication: COLORECTAL CANCER METASTATIC
     Dosage: UNK
     Route: 065

REACTIONS (14)
  - Rash pustular [Unknown]
  - Skin discolouration [Unknown]
  - Pruritus [Unknown]
  - Scar [Unknown]
  - Abdominal discomfort [Unknown]
  - Skin reaction [Unknown]
  - Ephelides [Unknown]
  - Acne [Unknown]
  - Skin exfoliation [Unknown]
  - Hepatic neoplasm [Unknown]
  - Carcinoembryonic antigen increased [Unknown]
  - Rhinalgia [Unknown]
  - Bowel movement irregularity [Unknown]
  - Malaise [Unknown]
